FAERS Safety Report 4433172-3 (Version None)
Quarter: 2004Q3

REPORT INFORMATION
  Report Type: 
  Country: None (occurrence: None)
  Receive Date: 20040823
  Receipt Date: 20040810
  Transmission Date: 20050211
  Serious: Yes (Hospitalization, Other)
  Sender: FDA-Public Use
  Company Number: 2004054765

PATIENT
  Age: 55 Year
  Sex: Female
  Weight: 58.9676 kg

DRUGS (7)
  1. GEODON [Suspect]
     Indication: ILL-DEFINED DISORDER
     Dosage: 100 MG (1 IN 1 D), ORAL
     Route: 048
     Dates: start: 20030101
  2. DEXAMFETAMINE (DEXAMFETAMINE) [Suspect]
     Indication: NARCOLEPSY
     Dosage: 60 MG (15 MG, 2 IN 1 D), ORAL
     Route: 048
  3. VENLAFAXINE HCL [Suspect]
     Indication: DEPRESSION
     Dosage: 300 MG (1 IN 1 D), ORAL
     Route: 048
     Dates: start: 20040101
  4. VALPROATE SODIUM [Concomitant]
  5. LEVOTHYROXINE SODIUM [Concomitant]
  6. NIFEDIPINE [Concomitant]
  7. MIRTAZAPINE [Concomitant]

REACTIONS (19)
  - ABDOMINAL DISCOMFORT [None]
  - ABDOMINAL DISTENSION [None]
  - ABDOMINAL PAIN [None]
  - BLOOD TRIGLYCERIDES INCREASED [None]
  - CHEST PAIN [None]
  - CONSTIPATION [None]
  - DEPRESSION [None]
  - DIARRHOEA [None]
  - DISEASE RECURRENCE [None]
  - DISTURBANCE IN ATTENTION [None]
  - DYSPEPSIA [None]
  - FATIGUE [None]
  - FLATULENCE [None]
  - FOOD INTOLERANCE [None]
  - MEDICATION ERROR [None]
  - NAUSEA [None]
  - PHAGOPHOBIA [None]
  - RETCHING [None]
  - SOMNOLENCE [None]
